FAERS Safety Report 16364988 (Version 2)
Quarter: 2019Q3

REPORT INFORMATION
  Report Type: Spontaneous
  Country: US (occurrence: US)
  Receive Date: 20190529
  Receipt Date: 20190704
  Transmission Date: 20191004
  Serious: Yes (Hospitalization, Other)
  Sender: FDA-Public Use
  Company Number: US-BRISTOL-MYERS SQUIBB COMPANY-BMS-2019-050046

PATIENT
  Age: 74 Year
  Sex: Female
  Weight: 81.6 kg

DRUGS (5)
  1. FOSAMAX [Concomitant]
     Active Substance: ALENDRONATE SODIUM
     Indication: OSTEOPOROSIS
     Dosage: 70 MILLIGRAM, QWK
     Route: 065
  2. IMITREX [Concomitant]
     Active Substance: SUMATRIPTAN SUCCINATE
     Indication: MIGRAINE
     Dosage: UNK
     Route: 065
  3. FISH OIL [Concomitant]
     Active Substance: FISH OIL
     Indication: CARDIAC DISORDER
     Dosage: 1000 MILLIGRAM
     Route: 048
  4. ELIQUIS [Suspect]
     Active Substance: APIXABAN
     Indication: PULMONARY EMBOLISM
     Dosage: 5 MILLIGRAM, DAILY
     Route: 048
     Dates: start: 20190318, end: 20190520
  5. ELIQUIS [Suspect]
     Active Substance: APIXABAN
     Indication: DEEP VEIN THROMBOSIS
     Route: 065

REACTIONS (4)
  - Eye disorder [Unknown]
  - Ocular hyperaemia [Unknown]
  - Eye irritation [Unknown]
  - Dry eye [Unknown]

NARRATIVE: CASE EVENT DATE: 20190521
